FAERS Safety Report 7983580 (Version 2)
Quarter: 2012Q4

REPORT INFORMATION
  Report Type: 
  Country: US (occurrence: US)
  Receive Date: 20110609
  Receipt Date: 20121105
  Transmission Date: 20130627
  Serious: Yes (Other)
  Sender: FDA-Public Use
  Company Number: US-ASTRAZENECA-2011SE32293

PATIENT
  Age: 57 Year
  Sex: Female
  Weight: 69.4 kg

DRUGS (2)
  1. NEXIUM EERD [Suspect]
     Indication: GASTROOESOPHAGEAL REFLUX DISEASE
     Route: 048
  2. TUMS OTC [Concomitant]
     Dosage: USES IT ON AND OFF

REACTIONS (9)
  - Joint injury [Unknown]
  - Fall [Unknown]
  - Accident at work [Unknown]
  - Joint injury [Unknown]
  - Gastrooesophageal reflux disease [Unknown]
  - Malaise [Unknown]
  - Drug dose omission [Unknown]
  - Loss of employment [None]
  - Treatment noncompliance [None]
